FAERS Safety Report 11516227 (Version 1)
Quarter: 2015Q3

REPORT INFORMATION
  Report Type: Spontaneous
  Country: US (occurrence: US)
  Receive Date: 20150917
  Receipt Date: 20150917
  Transmission Date: 20151125
  Serious: No
  Sender: FDA-Public Use
  Company Number: US-RB-069535-14

PATIENT

DRUGS (2)
  1. MUCINEX [Suspect]
     Active Substance: GUAIFENESIN
     Indication: SINUSITIS
     Dosage: 600MG. CONSUMER LAST USED THE PRODUCT ON 02-OCT-2014,FREQUENCY UNK
     Route: 065
     Dates: start: 20141002
  2. MUCINEX [Suspect]
     Active Substance: GUAIFENESIN
     Indication: EAR INFECTION

REACTIONS (2)
  - Product use issue [Not Recovered/Not Resolved]
  - Muscle spasms [Not Recovered/Not Resolved]

NARRATIVE: CASE EVENT DATE: 20141002
